FAERS Safety Report 7543990-0 (Version None)
Quarter: 2011Q2

REPORT INFORMATION
  Report Type: 
  Country: None (occurrence: None)
  Receive Date: 20110613
  Receipt Date: 20050428
  Transmission Date: 20111010
  Serious: Yes (Death)
  Sender: FDA-Public Use
  Company Number: PHHO2005GB02898

PATIENT
  Sex: Male

DRUGS (2)
  1. TOPAMAX [Suspect]
     Indication: EPILEPSY
     Dosage: 25 MG, BID
     Route: 048
     Dates: start: 20001218, end: 20010326
  2. CARBAMAZEPINE [Suspect]
     Indication: EPILEPSY
     Dates: start: 20010301, end: 20040301

REACTIONS (1)
  - ARTERIOSCLEROSIS CORONARY ARTERY [None]
